FAERS Safety Report 24304458 (Version 1)
Quarter: 2024Q3

REPORT INFORMATION
  Report Type: Spontaneous
  Country: US (occurrence: None)
  Receive Date: 20240910
  Receipt Date: 20240910
  Transmission Date: 20241016
  Serious: Yes (Hospitalization)
  Sender: Public
  Company Number: None

PATIENT
  Age: 67 Year
  Sex: Male
  Weight: 100.35 kg

DRUGS (3)
  1. MOUNJARO [Suspect]
     Active Substance: TIRZEPATIDE
     Indication: Injection
     Dosage: OTHER FREQUENCY : WEEKLY;?
     Route: 058
     Dates: start: 20240716, end: 20240823
  2. GLIPIZIDE [Suspect]
     Active Substance: GLIPIZIDE
  3. OZEMPIC [Suspect]
     Active Substance: SEMAGLUTIDE

REACTIONS (13)
  - Hypoglycaemia [None]
  - Diarrhoea [None]
  - Decreased appetite [None]
  - Thrombocytopenia [None]
  - Tremor [None]
  - Chest discomfort [None]
  - Encephalopathy [None]
  - Haemolytic uraemic syndrome [None]
  - Thrombotic thrombocytopenic purpura [None]
  - Acute kidney injury [None]
  - Renal tubular necrosis [None]
  - Adverse drug reaction [None]
  - Contrast media reaction [None]

NARRATIVE: CASE EVENT DATE: 20240831
